FAERS Safety Report 19417498 (Version 1)
Quarter: 2021Q2

REPORT INFORMATION
  Report Type: Spontaneous
  Country: US (occurrence: US)
  Receive Date: 20210615
  Receipt Date: 20210615
  Transmission Date: 20210717
  Serious: Yes (Hospitalization)
  Sender: FDA-Public Use
  Company Number: None

PATIENT
  Sex: Male

DRUGS (1)
  1. TOBRAMYCIN. [Suspect]
     Active Substance: TOBRAMYCIN
     Indication: IDIOPATHIC PULMONARY FIBROSIS
     Dosage: ?          OTHER FREQUENCY:EVERY 12 HOURS;?
     Route: 055
     Dates: start: 20210429

REACTIONS (1)
  - Pneumonia [None]
